FAERS Safety Report 14999467 (Version 1)
Quarter: 2018Q2

REPORT INFORMATION
  Report Type: Spontaneous
  Country: DE (occurrence: DE)
  Receive Date: 20180612
  Receipt Date: 20180612
  Transmission Date: 20180711
  Serious: Yes (Hospitalization)
  Sender: FDA-Public Use
  Company Number: DE-TEVA-2018-DE-904281

PATIENT
  Age: 81 Year
  Sex: Male
  Weight: 95 kg

DRUGS (13)
  1. MYCOPHENOLSAEURE [Concomitant]
     Active Substance: MYCOPHENOLATE SODIUM
     Dosage: 1080 MILLIGRAM DAILY; , 1-1-1-0
     Route: 048
  2. PANTOPRAZOL [Concomitant]
     Active Substance: PANTOPRAZOLE SODIUM
     Dosage: 40 MILLIGRAM DAILY; , 1-0-0-0
     Route: 048
  3. FENTANYL. [Suspect]
     Active Substance: FENTANYL
     Dosage: ?G/H
     Route: 061
  4. FEBUXOSTAT. [Concomitant]
     Active Substance: FEBUXOSTAT
     Dosage: 80 MILLIGRAM DAILY;  1-0-0-0
     Route: 048
  5. NOVAMINSULFON [Concomitant]
     Active Substance: METAMIZOLE
     Dosage: 2000 MILLIGRAM DAILY; , 1-1-1-1
     Route: 048
  6. PREDNISON [Concomitant]
     Active Substance: PREDNISONE
     Dosage: 5 MILLIGRAM DAILY; 1-0-0-0
     Route: 048
  7. COLECALCIFEROL [Concomitant]
     Active Substance: CHOLECALCIFEROL
     Dosage: IE, BY SCHEME
     Route: 048
  8. CANDESARTAN. [Concomitant]
     Active Substance: CANDESARTAN
     Dosage: 16 MILLIGRAM DAILY; , 0.5-0-0-0
     Route: 048
  9. EVEROLIMUS. [Concomitant]
     Active Substance: EVEROLIMUS
     Dosage: 2 MILLIGRAM DAILY;  1-0-1-0
     Route: 048
  10. FUROSEMIDE. [Suspect]
     Active Substance: FUROSEMIDE
     Dosage: 80 MILLIGRAM DAILY;  2-1-0-0
     Route: 048
  11. HYDROCHLOROTHIAZIDE. [Suspect]
     Active Substance: HYDROCHLOROTHIAZIDE
     Dosage: 12.5 MILLIGRAM DAILY; , 1-0-0-0
     Route: 048
  12. EVEROLIMUS. [Concomitant]
     Active Substance: EVEROLIMUS
     Dosage: .5 MILLIGRAM DAILY; 1-0-0-0
     Route: 048
  13. BISOPROLOL [Concomitant]
     Active Substance: BISOPROLOL
     Dosage: 5 MILLIGRAM DAILY;  1-0-1-0
     Route: 048

REACTIONS (5)
  - Disorientation [Unknown]
  - Medication error [Unknown]
  - Accidental overdose [Unknown]
  - General physical health deterioration [Unknown]
  - Drug prescribing error [Unknown]

NARRATIVE: CASE EVENT DATE: 20150923
